FAERS Safety Report 24547597 (Version 1)
Quarter: 2024Q4

REPORT INFORMATION
  Report Type: Spontaneous
  Country: US (occurrence: US)
  Receive Date: 20241025
  Receipt Date: 20241025
  Transmission Date: 20250114
  Serious: No
  Sender: TEVA
  Company Number: US-TEVA-VS-3251530

PATIENT
  Sex: Female

DRUGS (2)
  1. UZEDY [Suspect]
     Active Substance: RISPERIDONE
     Indication: Product used for unknown indication
     Dosage: 50/0.14 MG/ML
     Route: 065
     Dates: start: 20240916
  2. COGENTIN [Concomitant]
     Active Substance: BENZTROPINE MESYLATE

REACTIONS (3)
  - COVID-19 [Unknown]
  - Ageusia [Not Recovered/Not Resolved]
  - Pain in extremity [Not Recovered/Not Resolved]

NARRATIVE: CASE EVENT DATE: 20240101
